FAERS Safety Report 4503947-0 (Version None)
Quarter: 2004Q3

REPORT INFORMATION
  Report Type: 
  Country: None (occurrence: None)
  Receive Date: 20040927
  Receipt Date: 20040720
  Transmission Date: 20050211
  Serious: No
  Sender: FDA-Public Use
  Company Number: USA040773135

PATIENT
  Age: 48 Year
  Sex: Female
  Weight: 62 kg

DRUGS (6)
  1. STRATTERA [Suspect]
     Indication: ATTENTION DEFICIT/HYPERACTIVITY DISORDER
     Dosage: 40 MG DAY
     Dates: start: 20040714
  2. CLARITIN [Concomitant]
  3. KLONOPIN [Concomitant]
  4. FIORICET [Concomitant]
  5. WELLBUTRIN [Concomitant]
  6. FLOMAX [Concomitant]

REACTIONS (3)
  - CRYING [None]
  - DENTAL TREATMENT [None]
  - DEPRESSION [None]
